FAERS Safety Report 5693512-4 (Version None)
Quarter: 2008Q2

REPORT INFORMATION
  Report Type: 
  Country: None (occurrence: None)
  Receive Date: 20080403
  Receipt Date: 20080328
  Transmission Date: 20081010
  Serious: Yes (Death, Hospitalization)
  Sender: FDA-Public Use
  Company Number: B0511420A

PATIENT
  Age: 58 Year
  Sex: Male

DRUGS (3)
  1. GW572016 [Suspect]
     Indication: GASTRIC CANCER
     Route: 048
     Dates: start: 20071128, end: 20080301
  2. PACLITAXEL [Suspect]
     Indication: GASTRIC CANCER
     Route: 042
     Dates: start: 20071127, end: 20080228
  3. DECADRON [Suspect]
     Indication: PREMEDICATION

REACTIONS (9)
  - ANOREXIA [None]
  - COUGH [None]
  - HAEMATEMESIS [None]
  - LUNG CONSOLIDATION [None]
  - PNEUMONIA [None]
  - PYREXIA [None]
  - RESPIRATORY DISORDER [None]
  - VOMITING [None]
  - WHITE BLOOD CELL COUNT INCREASED [None]
